FAERS Safety Report 8612430-2 (Version None)
Quarter: 2012Q3

REPORT INFORMATION
  Report Type: 
  Country: None (occurrence: None)
  Receive Date: 20120822
  Receipt Date: 20120816
  Transmission Date: 20120928
  Serious: Yes (Other)
  Sender: FDA-Public Use
  Company Number: DE-PFIZER INC-2012200733

PATIENT
  Age: 44 Year
  Sex: Female

DRUGS (3)
  1. LYRICA [Interacting]
     Indication: ANXIETY DISORDER
     Dosage: 150 MG, 2X/DAY (IN THE MORNING AND IN THE EVENING)
     Dates: start: 20120601
  2. AVELOX [Interacting]
     Indication: PNEUMONIA
     Dosage: 400 MG, UNK
  3. CEFUROXIME AXETIL [Suspect]
     Indication: PNEUMONIA

REACTIONS (9)
  - PHOTOPHOBIA [None]
  - ILLUSION [None]
  - HYPERSOMNIA [None]
  - FEELING ABNORMAL [None]
  - DEPRESSED LEVEL OF CONSCIOUSNESS [None]
  - ASTHENIA [None]
  - PNEUMONIA [None]
  - DRUG INTERACTION [None]
  - AGGRESSION [None]
